APPROVED DRUG PRODUCT: PRED-G
Active Ingredient: GENTAMICIN SULFATE; PREDNISOLONE ACETATE
Strength: EQ 0.3% BASE;0.6%
Dosage Form/Route: OINTMENT;OPHTHALMIC
Application: N050612 | Product #001
Applicant: ALLERGAN PHARMACEUTICAL
Approved: Dec 1, 1989 | RLD: Yes | RS: No | Type: DISCN